FAERS Safety Report 16593917 (Version 1)
Quarter: 2019Q3

REPORT INFORMATION
  Report Type: Other
  Country: US (occurrence: US)
  Receive Date: 20190718
  Receipt Date: 20190718
  Transmission Date: 20191004
  Serious: No
  Sender: FDA-Public Use
  Company Number: US-SWEDISH ORPHAN BIOVITRUM-2018US1576

PATIENT
  Sex: Female

DRUGS (6)
  1. CYMBALTA [Concomitant]
     Active Substance: DULOXETINE HYDROCHLORIDE
  2. KINERET [Suspect]
     Active Substance: ANAKINRA
     Route: 058
     Dates: start: 20181122
  3. LYRICA [Concomitant]
     Active Substance: PREGABALIN
  4. AIMOVIG [Concomitant]
     Active Substance: ERENUMAB-AOOE
  5. ACETAZOLAMIDE. [Concomitant]
     Active Substance: ACETAZOLAMIDE
  6. FLEXERIL [Concomitant]
     Active Substance: CYCLOBENZAPRINE HYDROCHLORIDE

REACTIONS (2)
  - Ear infection [Unknown]
  - Injection site urticaria [Unknown]

NARRATIVE: CASE EVENT DATE: 2018
